FAERS Safety Report 10251932 (Version 1)
Quarter: 2014Q2

REPORT INFORMATION
  Report Type: Spontaneous
  Country: IT (occurrence: IT)
  Receive Date: 20140623
  Receipt Date: 20140623
  Transmission Date: 20141212
  Serious: Yes (Hospitalization, Other)
  Sender: FDA-Public Use
  Company Number: IT-ACCORD-024287

PATIENT
  Age: 53 Year
  Sex: Female

DRUGS (2)
  1. LEVETIRACETAM [Suspect]
     Indication: CONVULSION
     Dosage: DOSE RAPIDLY TITRATED UP TO 1000 MG TWICE DAILY.
  2. TOPIRAMATE [Suspect]
     Indication: CONVULSION
     Dosage: TITRATED UP TO A TOTAL DOSE OF 300 MG/DAY.

REACTIONS (1)
  - Convulsion [Recovered/Resolved]
